FAERS Safety Report 17641762 (Version 3)
Quarter: 2024Q4

REPORT INFORMATION
  Report Type: Spontaneous
  Country: FR (occurrence: FR)
  Receive Date: 20200408
  Receipt Date: 20241129
  Transmission Date: 20250115
  Serious: Yes (Hospitalization, Other)
  Sender: BRISTOL-MYERS SQUIBB COMPANY
  Company Number: FR-BRISTOL-MYERS SQUIBB COMPANY-BMS-2020-028677

PATIENT
  Age: 59 Year
  Sex: Male

DRUGS (4)
  1. NIVOLUMAB [Suspect]
     Active Substance: NIVOLUMAB
     Indication: Lung carcinoma cell type unspecified stage IV
     Dosage: 3 MILLIGRAM/KILOGRAM/ 15 DAYS
  2. NIVOLUMAB [Suspect]
     Active Substance: NIVOLUMAB
     Indication: Bronchial neoplasm
     Dosage: 3 MILLIGRAM/KILOGRAM/ 15 DAYS
  3. PEMBROLIZUMAB [Suspect]
     Active Substance: PEMBROLIZUMAB
     Indication: Lung carcinoma cell type unspecified stage IV
     Dosage: 2 MILLIGRAM/KILOGRAM
  4. PEMBROLIZUMAB [Suspect]
     Active Substance: PEMBROLIZUMAB
     Indication: Bronchial neoplasm

REACTIONS (4)
  - Tubulointerstitial nephritis [Recovered/Resolved]
  - Renal tubular acidosis [Recovered/Resolved]
  - Off label use [Unknown]
  - Intentional product use issue [Unknown]
